FAERS Safety Report 14399647 (Version 2)
Quarter: 2018Q1

REPORT INFORMATION
  Report Type: Spontaneous
  Country: US (occurrence: US)
  Receive Date: 20180117
  Receipt Date: 20180123
  Transmission Date: 20180509
  Serious: No
  Sender: FDA-Public Use
  Company Number: US-JNJFOC-20171227815

PATIENT
  Age: 69 Year
  Sex: Female
  Weight: 49.9 kg

DRUGS (13)
  1. METHOTREXATE. [Concomitant]
     Active Substance: METHOTREXATE
     Indication: RHEUMATOID ARTHRITIS
     Route: 065
     Dates: start: 201506
  2. CALCIUM [Concomitant]
     Active Substance: CALCIUM
     Route: 065
  3. XANAX [Concomitant]
     Active Substance: ALPRAZOLAM
     Indication: ANXIETY
     Route: 065
     Dates: start: 2012
  4. BUSPIRONE [Concomitant]
     Active Substance: BUSPIRONE HYDROCHLORIDE
     Indication: ANXIETY
     Dosage: (PRESCRIBED 2 PER DAY)
     Route: 065
     Dates: start: 2007
  5. SIMPONI ARIA [Suspect]
     Active Substance: GOLIMUMAB
     Indication: RHEUMATOID ARTHRITIS
     Dosage: WEEK 0, WEEK 4
     Route: 042
     Dates: start: 20171114
  6. MAGNESIUM [Concomitant]
     Active Substance: MAGNESIUM
     Route: 065
  7. SIMPONI ARIA [Suspect]
     Active Substance: GOLIMUMAB
     Indication: RHEUMATOID ARTHRITIS
     Route: 042
     Dates: start: 20171212
  8. FISH OIL [Concomitant]
     Active Substance: FISH OIL
     Route: 065
  9. VITAMIN D3 [Concomitant]
     Active Substance: CHOLECALCIFEROL
     Route: 065
  10. FOLIC ACID. [Concomitant]
     Active Substance: FOLIC ACID
     Route: 065
     Dates: start: 201506
  11. COQ10 [Concomitant]
     Active Substance: UBIDECARENONE
     Route: 065
  12. L GLUTAMINE [Concomitant]
     Active Substance: GLUTAMINE
     Indication: RHEUMATOID ARTHRITIS
     Route: 065
  13. VITAMINE C [Concomitant]
     Active Substance: ASCORBIC ACID
     Route: 065

REACTIONS (9)
  - Asthenia [Recovered/Resolved]
  - Dental restoration failure [Not Recovered/Not Resolved]
  - Musculoskeletal pain [Recovered/Resolved]
  - Headache [Recovered/Resolved]
  - Myalgia [Recovered/Resolved]
  - Palpitations [Unknown]
  - Paraesthesia [Recovered/Resolved]
  - Fatigue [Not Recovered/Not Resolved]
  - Chills [Recovered/Resolved]

NARRATIVE: CASE EVENT DATE: 2017
